FAERS Safety Report 6839561-1 (Version None)
Quarter: 2010Q3

REPORT INFORMATION
  Report Type: 
  Country: None (occurrence: None)
  Receive Date: 20100714
  Receipt Date: 20100218
  Transmission Date: 20110219
  Serious: No
  Sender: FDA-Public Use
  Company Number: A0845208A

PATIENT
  Age: 70 Year
  Sex: Female

DRUGS (4)
  1. FLOVENT [Suspect]
     Indication: ASTHMA
     Dosage: 220MCG TWICE PER DAY
     Route: 055
  2. NIASPAN [Concomitant]
  3. FLONASE [Concomitant]
  4. ASPIRIN [Concomitant]

REACTIONS (2)
  - CANDIDIASIS [None]
  - EXPIRED DRUG ADMINISTERED [None]
